FAERS Safety Report 16582815 (Version 1)
Quarter: 2019Q3

REPORT INFORMATION
  Report Type: Spontaneous
  Country: US (occurrence: US)
  Receive Date: 20190603
  Receipt Date: 20190603
  Transmission Date: 20191004
  Serious: No
  Sender: FDA-Public Use
  Company Number: None

PATIENT

DRUGS (2)
  1. TOUJEO [Suspect]
     Active Substance: INSULIN GLARGINE
  2. TOUJEO MAX [Suspect]
     Active Substance: INSULIN GLARGINE

REACTIONS (2)
  - Product packaging confusion [None]
  - Device dispensing error [None]
